FAERS Safety Report 5908131-1 (Version None)
Quarter: 2008Q4

REPORT INFORMATION
  Report Type: 
  Country: None (occurrence: None)
  Receive Date: 20081003
  Receipt Date: 20071024
  Transmission Date: 20090506
  Serious: Yes (Hospitalization)
  Sender: FDA-Public Use
  Company Number: US-BAXTER-2007BH008434

PATIENT
  Age: 97 Year
  Sex: Male

DRUGS (1)
  1. ELECTROLYTES NOS AND AMINO ACIDS NOS [Suspect]
     Indication: DRUG USE FOR UNKNOWN INDICATION
     Dosage: DOSE UNIT:UNKNOWN
     Route: 042
     Dates: start: 20071012, end: 20071012

REACTIONS (3)
  - BLOOD ELECTROLYTES ABNORMAL [None]
  - BLOOD POTASSIUM INCREASED [None]
  - DRUG ADMINISTRATION ERROR [None]
